FAERS Safety Report 6710102-2 (Version None)
Quarter: 2010Q2

REPORT INFORMATION
  Report Type: 
  Country: None (occurrence: None)
  Receive Date: 20100504
  Receipt Date: 20100423
  Transmission Date: 20101027
  Serious: Yes (Life-Threatening)
  Sender: FDA-Public Use
  Company Number: GB-PFIZER INC-2010051422

PATIENT
  Age: 63 Year
  Sex: Male
  Weight: 95.2 kg

DRUGS (6)
  1. CHAMPIX [Suspect]
     Indication: SMOKING CESSATION THERAPY
     Dosage: 2 MG, UNK
     Route: 048
     Dates: start: 20100201, end: 20100410
  2. CALCICHEW-D3 [Concomitant]
     Indication: OSTEOGENESIS IMPERFECTA
     Dosage: 2 DF, 1X/DAY
     Route: 048
     Dates: start: 20050526
  3. EICOSAPENTAENOIC ACID [Concomitant]
     Indication: MYOCARDIAL ISCHAEMIA
     Dosage: 1 DF, UNK
     Route: 048
     Dates: start: 20050526
  4. FUROSEMIDE [Concomitant]
     Indication: MYOCARDIAL ISCHAEMIA
     Dosage: 40 MG, UNK
     Route: 048
     Dates: start: 20050526
  5. LEVOTHYROXINE [Concomitant]
     Indication: HYPOTHYROIDISM
     Dosage: 300 UG, UNK
     Route: 048
     Dates: start: 20050526
  6. NICORANDIL [Concomitant]
     Indication: ANGINA PECTORIS
     Dosage: 20 MG, UNK
     Route: 048
     Dates: start: 20050525

REACTIONS (3)
  - ABNORMAL SLEEP-RELATED EVENT [None]
  - HALLUCINATION, VISUAL [None]
  - NIGHTMARE [None]
